FAERS Safety Report 7331389-1 (Version None)
Quarter: 2011Q1

REPORT INFORMATION
  Report Type: 
  Country: None (occurrence: None)
  Receive Date: 20110304
  Receipt Date: 20110222
  Transmission Date: 20110831
  Serious: Yes (Other)
  Sender: FDA-Public Use
  Company Number: BR-BAYER-2011-017335

PATIENT
  Sex: Female
  Weight: 60 kg

DRUGS (2)
  1. MIRENA [Suspect]
     Indication: PREMENSTRUAL SYNDROME
  2. MIRENA [Suspect]
     Indication: MENORRHAGIA
     Dosage: 20 ?G/D, CONT
     Route: 015
     Dates: start: 20091029

REACTIONS (5)
  - SWELLING [None]
  - MENORRHAGIA [None]
  - LYMPHADENOPATHY [None]
  - VULVOVAGINAL DISCOMFORT [None]
  - VULVOVAGINAL PRURITUS [None]
